FAERS Safety Report 6136010-6 (Version None)
Quarter: 2009Q1

REPORT INFORMATION
  Report Type: 
  Country: None (occurrence: None)
  Receive Date: 20090330
  Receipt Date: 20090319
  Transmission Date: 20090719
  Serious: Yes (Other)
  Sender: FDA-Public Use
  Company Number: US-SOLVAY-00209000537

PATIENT
  Age: 51 Year
  Sex: Male
  Weight: 114 kg

DRUGS (2)
  1. ANDROGEL [Suspect]
     Indication: BLOOD TESTOSTERONE DECREASED
     Dosage: DAILY DOSE:  UNKNOWN
     Route: 062
     Dates: start: 20080101, end: 20081201
  2. ANDROGEL [Suspect]
     Dosage: DAILY DOSE:  UNKNOWN
     Route: 062
     Dates: start: 20081201

REACTIONS (3)
  - CARDIOMYOPATHY [None]
  - OEDEMA PERIPHERAL [None]
  - WITHDRAWAL SYNDROME [None]
